FAERS Safety Report 7913643-5 (Version None)
Quarter: 2011Q4

REPORT INFORMATION
  Report Type: 
  Country: None (occurrence: None)
  Receive Date: 20111115
  Receipt Date: 20111109
  Transmission Date: 20120403
  Serious: No
  Sender: FDA-Public Use
  Company Number: US-PFIZER INC-2011274678

PATIENT
  Age: 27 Year
  Sex: Female
  Weight: 50 kg

DRUGS (4)
  1. REVATIO [Suspect]
     Dosage: UNK
  2. AMBRISENTAN [Suspect]
     Dosage: 167.76 UG/KG (0.1165 UG/KG, 1 IN 1 MIN)
     Route: 058
  3. OXYGEN [Concomitant]
     Dosage: UNK
  4. REMODULIN [Suspect]
     Indication: PULMONARY ARTERIAL HYPERTENSION
     Dosage: 176.4 UG/KG (0.1225 UG/KG, 1 IN 1 MIN)
     Route: 058
     Dates: start: 20070619

REACTIONS (1)
  - PAIN IN EXTREMITY [None]
